FAERS Safety Report 18415583 (Version 1)
Quarter: 2020Q4

REPORT INFORMATION
  Report Type: Spontaneous
  Country: GR (occurrence: GR)
  Receive Date: 20201022
  Receipt Date: 20201022
  Transmission Date: 20210114
  Serious: Yes (Other)
  Sender: FDA-Public Use
  Company Number: GR-GILEAD-2020-0500266

PATIENT
  Age: 70 Year
  Sex: Female

DRUGS (2)
  1. ZOCOR [Concomitant]
     Active Substance: SIMVASTATIN
     Indication: PRODUCT USED FOR UNKNOWN INDICATION
     Dosage: 20 MG, QD
     Route: 048
     Dates: start: 20100701, end: 20200701
  2. AMBRISENTAN [Suspect]
     Active Substance: AMBRISENTAN
     Indication: PRODUCT USED FOR UNKNOWN INDICATION
     Dosage: 5 MG, QD
     Route: 048
     Dates: start: 20200303, end: 20200701

REACTIONS (1)
  - Hepatotoxicity [Recovered/Resolved]

NARRATIVE: CASE EVENT DATE: 2020
